FAERS Safety Report 19748498 (Version 6)
Quarter: 2021Q4

REPORT INFORMATION
  Report Type: Report from Study
  Country: US (occurrence: US)
  Receive Date: 20210825
  Receipt Date: 20211216
  Transmission Date: 20220303
  Serious: Yes (Other)
  Sender: FDA-Public Use
  Company Number: NVSC2021US189920

PATIENT
  Sex: Female

DRUGS (1)
  1. ENTRESTO [Suspect]
     Active Substance: SACUBITRIL\VALSARTAN
     Indication: Product used for unknown indication
     Dosage: 1 DF (49/51 MG), BID
     Route: 048

REACTIONS (10)
  - Diabetes mellitus [Unknown]
  - Cardiac dysfunction [Unknown]
  - Malaise [Unknown]
  - Burning sensation [Unknown]
  - Pleural effusion [Unknown]
  - Anxiety [Unknown]
  - Dyspnoea [Unknown]
  - Dysstasia [Unknown]
  - Nausea [Unknown]
  - Rash macular [Unknown]
